FAERS Safety Report 8806577 (Version 1)
Quarter: 2012Q4

REPORT INFORMATION
  Report Type: 
  Country: US (occurrence: US)
  Receive Date: 20120925
  Receipt Date: 20120925
  Transmission Date: 20130627
  Serious: No
  Sender: FDA-Public Use
  Company Number: US-009507513-1209USA008149

PATIENT
  Age: 63 Year
  Sex: Male

DRUGS (5)
  1. SYLATRON [Suspect]
     Indication: MALIGNANT MELANOMA
     Dosage: 0.46 mg, qw
     Dates: start: 20120910
  2. BUSPIRONE HYDROCHLORIDE [Concomitant]
  3. NIFICAL [Concomitant]
  4. DIOVAN [Concomitant]
  5. FLOMAX (MORNIFLUMATE) [Concomitant]

REACTIONS (3)
  - Blood pressure increased [Not Recovered/Not Resolved]
  - Insomnia [Not Recovered/Not Resolved]
  - Euphoric mood [Not Recovered/Not Resolved]
